FAERS Safety Report 4408732-6 (Version None)
Quarter: 2004Q3

REPORT INFORMATION
  Report Type: 
  Country: None (occurrence: None)
  Receive Date: 20040727
  Receipt Date: 20040701
  Transmission Date: 20050211
  Serious: Yes (Death)
  Sender: FDA-Public Use
  Company Number: 200412233JP

PATIENT
  Age: 50 Year
  Sex: Female
  Weight: 70 kg

DRUGS (4)
  1. TAXOTERE [Suspect]
     Indication: METASTASES TO LIVER
     Route: 041
     Dates: start: 20031222, end: 20040506
  2. LASIX [Concomitant]
     Indication: ASCITES
     Dosage: DOSE: 1 TABLET
     Route: 048
     Dates: start: 20040518
  3. ALDACTONE [Concomitant]
     Indication: ASCITES
     Dosage: DOSE: 1 TABLET
     Route: 048
     Dates: start: 20040518
  4. PREDONINE [Concomitant]
     Indication: ASCITES
     Dosage: DOSE: 2 TABLETS
     Route: 048
     Dates: start: 20040518

REACTIONS (6)
  - ASCITES [None]
  - HEPATIC FAILURE [None]
  - HEPATITIS CHOLESTATIC [None]
  - HEPATITIS FULMINANT [None]
  - RESPIRATORY FAILURE [None]
  - THERAPY NON-RESPONDER [None]
